FAERS Safety Report 24542555 (Version 1)
Quarter: 2024Q4

REPORT INFORMATION
  Report Type: Report from Study
  Country: JP (occurrence: JP)
  Receive Date: 20241024
  Receipt Date: 20241024
  Transmission Date: 20250115
  Serious: Yes (Other)
  Sender: ROCHE
  Company Number: JP-CHUGAI-2024036476AA

PATIENT
  Age: 82 Year
  Sex: Female
  Weight: 61 kg

DRUGS (26)
  1. POLIVY [Suspect]
     Active Substance: POLATUZUMAB VEDOTIN-PIIQ
     Indication: Diffuse large B-cell lymphoma
     Dosage: 110 MILLIGRAM
     Route: 042
     Dates: start: 20231025, end: 20231025
  2. POLIVY [Suspect]
     Active Substance: POLATUZUMAB VEDOTIN-PIIQ
     Dosage: 110 MILLIGRAM
     Route: 042
     Dates: start: 20231115, end: 20231115
  3. POLIVY [Suspect]
     Active Substance: POLATUZUMAB VEDOTIN-PIIQ
     Dosage: 110 MILLIGRAM
     Route: 042
     Dates: start: 20231206, end: 20231206
  4. POLIVY [Suspect]
     Active Substance: POLATUZUMAB VEDOTIN-PIIQ
     Dosage: 110 MILLIGRAM
     Route: 042
     Dates: start: 20231227, end: 20231227
  5. POLIVY [Suspect]
     Active Substance: POLATUZUMAB VEDOTIN-PIIQ
     Dosage: 110 MILLIGRAM
     Route: 042
     Dates: start: 20240117, end: 20240117
  6. RITUXIMAB [Concomitant]
     Active Substance: RITUXIMAB
     Indication: Diffuse large B-cell lymphoma
     Dosage: 600 MILLIGRAM
     Route: 042
     Dates: start: 20231024, end: 20231024
  7. RITUXIMAB [Concomitant]
     Active Substance: RITUXIMAB
     Dosage: 600 MILLIGRAM
     Route: 042
     Dates: start: 20231114, end: 20231114
  8. RITUXIMAB [Concomitant]
     Active Substance: RITUXIMAB
     Dosage: 600 MILLIGRAM
     Route: 042
     Dates: start: 20231205, end: 20231205
  9. RITUXIMAB [Concomitant]
     Active Substance: RITUXIMAB
     Dosage: 600 MILLIGRAM
     Route: 042
     Dates: start: 20231226, end: 20231226
  10. RITUXIMAB [Concomitant]
     Active Substance: RITUXIMAB
     Dosage: 600 MILLIGRAM
     Route: 042
     Dates: start: 20240116, end: 20240116
  11. CYCLOPHOSPHAMIDE [Concomitant]
     Active Substance: CYCLOPHOSPHAMIDE
     Indication: Diffuse large B-cell lymphoma
     Dosage: 800 MILLIGRAM
     Route: 042
     Dates: start: 20231025, end: 20231025
  12. CYCLOPHOSPHAMIDE [Concomitant]
     Active Substance: CYCLOPHOSPHAMIDE
     Dosage: 800 MILLIGRAM
     Route: 042
     Dates: start: 20231115, end: 20231115
  13. CYCLOPHOSPHAMIDE [Concomitant]
     Active Substance: CYCLOPHOSPHAMIDE
     Dosage: 800 MILLIGRAM
     Route: 042
     Dates: start: 20231206, end: 20231206
  14. CYCLOPHOSPHAMIDE [Concomitant]
     Active Substance: CYCLOPHOSPHAMIDE
     Dosage: 800 MILLIGRAM
     Route: 042
     Dates: start: 20231227, end: 20231227
  15. CYCLOPHOSPHAMIDE [Concomitant]
     Active Substance: CYCLOPHOSPHAMIDE
     Dosage: 800 MILLIGRAM
     Route: 042
     Dates: start: 20240117, end: 20240117
  16. DOXORUBICIN HYDROCHLORIDE [Concomitant]
     Active Substance: DOXORUBICIN HYDROCHLORIDE
     Indication: Diffuse large B-cell lymphoma
     Dosage: 50 MILLIGRAM
     Route: 042
     Dates: start: 20231025, end: 20231025
  17. DOXORUBICIN HYDROCHLORIDE [Concomitant]
     Active Substance: DOXORUBICIN HYDROCHLORIDE
     Dosage: 50 MILLIGRAM
     Route: 042
     Dates: start: 20231115, end: 20231115
  18. DOXORUBICIN HYDROCHLORIDE [Concomitant]
     Active Substance: DOXORUBICIN HYDROCHLORIDE
     Dosage: 50 MILLIGRAM
     Route: 042
     Dates: start: 20231206, end: 20231206
  19. DOXORUBICIN HYDROCHLORIDE [Concomitant]
     Active Substance: DOXORUBICIN HYDROCHLORIDE
     Dosage: 50 MILLIGRAM
     Route: 042
     Dates: start: 20231227, end: 20231227
  20. DOXORUBICIN HYDROCHLORIDE [Concomitant]
     Active Substance: DOXORUBICIN HYDROCHLORIDE
     Dosage: 40 MILLIGRAM
     Route: 042
     Dates: start: 20240117, end: 20240117
  21. PREDNISOLONE [Concomitant]
     Active Substance: PREDNISOLONE
     Indication: Diffuse large B-cell lymphoma
     Dosage: 30 MILLIGRAM
     Route: 050
     Dates: start: 20231025, end: 20231029
  22. PREDNISOLONE [Concomitant]
     Active Substance: PREDNISOLONE
     Dosage: 30 MILLIGRAM
     Route: 050
     Dates: start: 20231115, end: 20231119
  23. PREDNISOLONE [Concomitant]
     Active Substance: PREDNISOLONE
     Dosage: 30 MILLIGRAM
     Route: 050
     Dates: start: 20231206, end: 20231210
  24. PREDNISOLONE [Concomitant]
     Active Substance: PREDNISOLONE
     Dosage: 30 MILLIGRAM
     Route: 050
     Dates: start: 20231227, end: 20231231
  25. PREDNISOLONE [Concomitant]
     Active Substance: PREDNISOLONE
     Dosage: 30 MILLIGRAM
     Route: 050
     Dates: start: 20240117, end: 20240121
  26. PEGFILGRASTIM [Concomitant]
     Active Substance: PEGFILGRASTIM
     Dosage: UNK
     Route: 065

REACTIONS (2)
  - Organising pneumonia [Recovering/Resolving]
  - Nausea [Unknown]

NARRATIVE: CASE EVENT DATE: 20240205
